FAERS Safety Report 17487226 (Version 1)
Quarter: 2020Q1

REPORT INFORMATION
  Report Type: Spontaneous
  Country: UA (occurrence: UA)
  Receive Date: 20200303
  Receipt Date: 20200303
  Transmission Date: 20200409
  Serious: Yes (Other)
  Sender: FDA-Public Use
  Company Number: UA-TEVA-2020-UA-1194336

PATIENT
  Age: 4 Year
  Sex: Male

DRUGS (1)
  1. SUMAMED [Suspect]
     Active Substance: AZITHROMYCIN ANHYDROUS
     Dosage: SUSPENSION
     Route: 065

REACTIONS (2)
  - Diarrhoea [Unknown]
  - Clostridial infection [Unknown]
